FAERS Safety Report 4493730-7 (Version None)
Quarter: 2004Q4

REPORT INFORMATION
  Report Type: 
  Country: None (occurrence: None)
  Receive Date: 20041105
  Receipt Date: 20041026
  Transmission Date: 20050328
  Serious: Yes (Congenital Anomaly)
  Sender: FDA-Public Use
  Company Number: SE-ABBOTT-04P-150-0279032-00

PATIENT
  Age: 1 Day
  Sex: Female

DRUGS (1)
  1. ERGENYL SLOW RELEASE [Suspect]
     Indication: DRUG EXPOSURE DURING PREGNANCY

REACTIONS (7)
  - DRUG EXPOSURE DURING PREGNANCY [None]
  - FACIAL DYSMORPHISM [None]
  - FEEDING PROBLEM IN NEWBORN [None]
  - HYPOTONIA [None]
  - HYPOTONIA NEONATAL [None]
  - POLYDACTYLY [None]
  - PSYCHOMOTOR RETARDATION [None]
